FAERS Safety Report 6170510-8 (Version None)
Quarter: 2009Q2

REPORT INFORMATION
  Report Type: 
  Country: None (occurrence: None)
  Receive Date: 20090427
  Receipt Date: 20090427
  Transmission Date: 20091009
  Serious: Yes (Life-Threatening, Hospitalization)
  Sender: FDA-Public Use
  Company Number: None

PATIENT
  Age: 68 Year
  Sex: Male
  Weight: 60 kg

DRUGS (5)
  1. WARFARIN SODIUM [Suspect]
     Indication: DEEP VEIN THROMBOSIS
     Dosage: 4 MG PO QD
     Route: 048
     Dates: start: 20081001, end: 20090109
  2. LISINOPRIL [Concomitant]
  3. BENADRYL [Concomitant]
  4. M.V.I. [Concomitant]
  5. PERCOCET [Concomitant]

REACTIONS (2)
  - HAEMATEMESIS [None]
  - INTERNATIONAL NORMALISED RATIO INCREASED [None]
